FAERS Safety Report 7292556 (Version 2)
Quarter: 2014Q3

REPORT INFORMATION
  Report Type: Spontaneous
  Country: US (occurrence: None)
  Receive Date: 20100203
  Receipt Date: 20140714
  Transmission Date: 20150326
  Serious: Yes (Other)
  Sender: FDA-Public Use
  Company Number: 2010S1000420

PATIENT
  Age: 65 Year
  Sex: Female

DRUGS (20)
  1. ALLEGRA (FEXOFENADINE HYDROCHLORIDE) [Concomitant]
  2. MELATONIN (MELATONIN) [Concomitant]
     Active Substance: MELATONIN
  3. FLONASE [Concomitant]
     Active Substance: FLUTICASONE PROPIONATE
  4. GABAPENTIN (GABAPENTIN) [Concomitant]
     Active Substance: GABAPENTIN
  5. NEXIUM [Concomitant]
     Active Substance: ESOMEPRAZOLE MAGNESIUM
  6. LISINOPRIL (LISINOPRIL) [Concomitant]
     Active Substance: LISINOPRIL
  7. NITROGLYCERIN (GLYCERYL TRINITRATE) [Concomitant]
  8. MIACALCIN (CALCITONIN, SALMON) [Concomitant]
  9. NORVASC [Concomitant]
     Active Substance: AMLODIPINE BESYLATE
  10. SIMVASTATIN (SIMVASTATIN) [Concomitant]
     Active Substance: SIMVASTATIN
  11. TRAMADOL (TRAMADOL) [Concomitant]
     Active Substance: TRAMADOL
  12. FLEET NOS [Suspect]
     Active Substance: BISACODYL OR GLYCERIN OR MINERAL OIL OR SODIUM PHOSPHATE, DIBASIC\SODIUM PHOSPHATE, MONOBASIC
     Indication: PRODUCT USED FOR UNKNOWN INDICATION
  13. CYANACOBALAMIN (CYANOCOBALAMIN) [Concomitant]
  14. AMITRIPTYLINE (AMITRIPTYLINE HYDROCHLORIDE) [Concomitant]
  15. NEURONTIN [Concomitant]
     Active Substance: GABAPENTIN
  16. PAXIL [Concomitant]
     Active Substance: PAROXETINE HYDROCHLORIDE
  17. MECLIZINE (MECLOZINE) [Concomitant]
  18. ASPIRIN (ACETYLSALICYLIC ACID) [Concomitant]
     Active Substance: ASPIRIN
  19. PHOSPHO-SODA [Suspect]
     Active Substance: SODIUM PHOSPHATE, DIBASIC\SODIUM PHOSPHATE, MONOBASIC
     Indication: COLONOSCOPY
     Dosage: ,TOTAL, PO
     Route: 048
     Dates: start: 20071112, end: 20071113
  20. ZOCOR [Concomitant]
     Active Substance: SIMVASTATIN

REACTIONS (10)
  - Renal disorder [None]
  - Rectal haemorrhage [None]
  - Dry skin [None]
  - Tremor [None]
  - Haemorrhoids [None]
  - Palpitations [None]
  - Blood thyroid stimulating hormone decreased [None]
  - Fatigue [None]
  - Arteriovenous malformation [None]
  - Diarrhoea [None]

NARRATIVE: CASE EVENT DATE: 20080313
